FAERS Safety Report 4949994-6 (Version None)
Quarter: 2006Q1

REPORT INFORMATION
  Report Type: 
  Country: None (occurrence: None)
  Receive Date: 20060316
  Receipt Date: 20060308
  Transmission Date: 20060701
  Serious: Yes (Other)
  Sender: FDA-Public Use
  Company Number: 2005155966

PATIENT
  Age: 87 Year
  Sex: Male

DRUGS (7)
  1. NEURONTIN [Suspect]
     Indication: HYPOAESTHESIA
     Dosage: 900 MG (300 MG, 3 IN 1 D), ORAL
     Route: 048
     Dates: start: 20051106
  2. LASIX [Concomitant]
  3. MOTENS (LACIDIPINE) [Concomitant]
  4. ALLOPURINOL [Concomitant]
  5. THYROHORMONE (LEVOTHYROXINE SODIUM) [Concomitant]
  6. SINTROM [Concomitant]
  7. ALL OTHER THERAPEUTIC PRODUCTS (ALL OTHER THERAPEUTIC PRODUCTS) [Concomitant]

REACTIONS (4)
  - CONSTIPATION [None]
  - RENAL PAIN [None]
  - URINE OUTPUT DECREASED [None]
  - WEIGHT INCREASED [None]
